FAERS Safety Report 7343146-0 (Version None)
Quarter: 2011Q1

REPORT INFORMATION
  Report Type: 
  Country: None (occurrence: None)
  Receive Date: 20110308
  Receipt Date: 20110308
  Transmission Date: 20110831
  Serious: Yes (Hospitalization)
  Sender: FDA-Public Use
  Company Number: None

PATIENT
  Sex: Male
  Weight: 57 kg

DRUGS (2)
  1. CARBOPLATIN [Suspect]
     Dosage: 1300 MG
     Dates: end: 20110221
  2. TAXOL [Suspect]
     Dosage: 465 MG
     Dates: end: 20110221

REACTIONS (5)
  - MALAISE [None]
  - HYPOTENSION [None]
  - PNEUMONIA [None]
  - FATIGUE [None]
  - NEUTROPHIL COUNT DECREASED [None]
